FAERS Safety Report 10174801 (Version 2)
Quarter: 2014Q2

REPORT INFORMATION
  Report Type: Report from Study
  Country: US (occurrence: US)
  Receive Date: 20140515
  Receipt Date: 20140515
  Transmission Date: 20141212
  Serious: Yes (Other)
  Sender: FDA-Public Use
  Company Number: US-GILEAD-2014-0098980

PATIENT
  Age: 66 Year
  Sex: Male

DRUGS (3)
  1. SOFOSBUVIR [Suspect]
     Indication: CHRONIC HEPATITIS C
     Dosage: 400 MG, QD
     Route: 065
     Dates: start: 20140308
  2. PEGASYS [Interacting]
     Indication: CHRONIC HEPATITIS C
     Dosage: 180 ?G, Q1WK
     Route: 065
  3. RIBAVIRIN [Interacting]
     Indication: CHRONIC HEPATITIS C
     Dosage: 600 MG AM 400 MG PM, BID
     Route: 065

REACTIONS (5)
  - Ulcer haemorrhage [Unknown]
  - Abdominal discomfort [Unknown]
  - Drug interaction [Unknown]
  - Dizziness [Unknown]
  - Insomnia [Unknown]
